FAERS Safety Report 13586649 (Version 2)
Quarter: 2017Q2

REPORT INFORMATION
  Report Type: Spontaneous
  Country: DE (occurrence: DE)
  Receive Date: 20170526
  Receipt Date: 20170616
  Transmission Date: 20170830
  Serious: Yes (Hospitalization, Other)
  Sender: FDA-Public Use
  Company Number: DE-PFIZER INC-2017226154

PATIENT
  Age: 38 Year
  Sex: Female

DRUGS (1)
  1. TREVILOR RETARD [Suspect]
     Active Substance: VENLAFAXINE HYDROCHLORIDE
     Indication: DEPRESSION
     Dosage: 75 MG, 1X/DAY (IN THE MORNING)
     Dates: start: 2005, end: 201004

REACTIONS (1)
  - Prolactin-producing pituitary tumour [Recovered/Resolved]

NARRATIVE: CASE EVENT DATE: 201002
